FAERS Safety Report 8263777-3 (Version None)
Quarter: 2012Q2

REPORT INFORMATION
  Report Type: 
  Country: None (occurrence: None)
  Receive Date: 20120405
  Receipt Date: 20120330
  Transmission Date: 20120825
  Serious: Yes (Hospitalization, Other)
  Sender: FDA-Public Use
  Company Number: US-ABBOTT-12P-163-0920659-00

PATIENT
  Age: 57 Year
  Sex: Female

DRUGS (10)
  1. DAPSONE [Concomitant]
     Indication: SKIN DISORDER
  2. ESTRADIOL [Concomitant]
     Indication: OESTROGEN THERAPY
  3. FOLIC ACID [Concomitant]
     Indication: RHEUMATOID ARTHRITIS
  4. HUMIRA [Suspect]
     Indication: RHEUMATOID ARTHRITIS
     Dates: start: 20110601
  5. FOSAMAX [Concomitant]
     Indication: BONE DISORDER
  6. CALCIUM W/MAGNESIUM [Concomitant]
     Indication: BONE DISORDER
  7. METHOTREXATE [Concomitant]
     Indication: RHEUMATOID ARTHRITIS
  8. VALIUM [Concomitant]
     Indication: ANXIETY
  9. PRILOSEC [Concomitant]
     Indication: GASTRIC DISORDER
  10. ELAVIL [Concomitant]
     Indication: MUSCLE RELAXANT THERAPY
     Dosage: AT BEDTIME

REACTIONS (8)
  - CARDIAC FAILURE CONGESTIVE [None]
  - PELVIC FRACTURE [None]
  - HERPES ZOSTER [None]
  - CHOLECYSTECTOMY [None]
  - CATARACT OPERATION [None]
  - RESTLESS LEGS SYNDROME [None]
  - PULMONARY HYPERTENSION [None]
  - PAIN [None]
